FAERS Safety Report 14799092 (Version 1)
Quarter: 2018Q2

REPORT INFORMATION
  Report Type: Spontaneous
  Country: DE (occurrence: DE)
  Receive Date: 20180424
  Receipt Date: 20180424
  Transmission Date: 20180711
  Serious: Yes (Other)
  Sender: FDA-Public Use
  Company Number: GXKR2007DE01834

PATIENT
  Age: 25 Year
  Sex: Female

DRUGS (1)
  1. VALPROIC ACID. [Suspect]
     Active Substance: VALPROIC ACID
     Indication: EPILEPSY
     Route: 065

REACTIONS (4)
  - Liver disorder [Recovered/Resolved]
  - Cerebral infarction [Unknown]
  - Rhabdomyolysis [Unknown]
  - Hyperammonaemia [Unknown]
